FAERS Safety Report 7861485-1 (Version None)
Quarter: 2011Q4

REPORT INFORMATION
  Report Type: 
  Country: None (occurrence: None)
  Receive Date: 20111027
  Receipt Date: 20111017
  Transmission Date: 20120403
  Serious: Yes (Other)
  Sender: FDA-Public Use
  Company Number: US-MYLANLABS-2011S1021625

PATIENT
  Age: 33 Year
  Sex: Male

DRUGS (1)
  1. AMNESTEEM [Suspect]

REACTIONS (2)
  - SUICIDAL IDEATION [None]
  - DEPRESSION [None]
